FAERS Safety Report 13663649 (Version 9)
Quarter: 2017Q4

REPORT INFORMATION
  Report Type: Spontaneous
  Country: US (occurrence: US)
  Receive Date: 20170619
  Receipt Date: 20171225
  Transmission Date: 20180320
  Serious: Yes (Congenital Anomaly, Other)
  Sender: FDA-Public Use
  Company Number: PHEH2017US018501

PATIENT
  Sex: Male

DRUGS (3)
  1. ZOFRAN [Suspect]
     Active Substance: ONDANSETRON HYDROCHLORIDE
     Indication: FOETAL EXPOSURE DURING PREGNANCY
     Dosage: MOTHER^S DOSE: 4 MG, UNK AND 04 MG PER 02 ML, Q6H
     Route: 064
  2. ONDANSETRON [Suspect]
     Active Substance: ONDANSETRON
     Indication: FOETAL EXPOSURE DURING PREGNANCY
     Dosage: MOTHER^S DOSE: 4 MG, UNK
     Route: 064
  3. ONDANSETRON [Suspect]
     Active Substance: ONDANSETRON
     Indication: FOETAL EXPOSURE DURING PREGNANCY
     Dosage: MOTHER^S DOSE: 4 MG, Q4H, PRN
     Route: 064

REACTIONS (80)
  - Patent ductus arteriosus [Unknown]
  - Atelectasis neonatal [Not Recovered/Not Resolved]
  - Mitral valve incompetence [Unknown]
  - Supraventricular tachycardia [Unknown]
  - Otitis media [Unknown]
  - Tricuspid valve incompetence [Not Recovered/Not Resolved]
  - Right atrial dilatation [Unknown]
  - Pulmonary congestion [Unknown]
  - Atrioventricular block first degree [Unknown]
  - Atrial flutter [Unknown]
  - Dysphagia [Unknown]
  - Nasal congestion [Unknown]
  - Cough [Unknown]
  - Conjunctivitis allergic [Unknown]
  - Prepuce redundant [Unknown]
  - Gastrooesophageal reflux disease [Unknown]
  - Phimosis [Unknown]
  - Failure to thrive [Unknown]
  - Lung hyperinflation [Unknown]
  - Hypoxia [Not Recovered/Not Resolved]
  - Arrhythmia [Unknown]
  - Thrombocytopenia neonatal [Unknown]
  - Pneumothorax [Unknown]
  - Hypokalaemia [Unknown]
  - Pulmonary oedema neonatal [Recovering/Resolving]
  - Gastroenteritis [Unknown]
  - Pyrexia [Unknown]
  - Metabolic acidosis [Not Recovered/Not Resolved]
  - Phlebitis [Unknown]
  - Pulmonary valve stenosis congenital [Unknown]
  - Mitral valve disease [Unknown]
  - Low cardiac output syndrome [Unknown]
  - Pulmonary hypertension [Unknown]
  - Stress ulcer [Unknown]
  - Pleural effusion [Unknown]
  - Bacterial infection [Unknown]
  - Diarrhoea [Unknown]
  - Anaemia neonatal [Unknown]
  - Pulmonary artery atresia [Unknown]
  - Ebstein^s anomaly [Unknown]
  - Left ventricular dilatation [Unknown]
  - Tricuspid valve disease [Unknown]
  - Neonatal hypotension [Not Recovered/Not Resolved]
  - Respiratory syncytial virus bronchiolitis [Unknown]
  - Atrial tachycardia [Not Recovered/Not Resolved]
  - Staphylococcal infection [Unknown]
  - Cardiomegaly [Unknown]
  - Tracheitis [Unknown]
  - Tonsillitis [Unknown]
  - Pulmonary hypoplasia [Unknown]
  - Right ventricular dilatation [Unknown]
  - Neonatal respiratory failure [Recovered/Resolved]
  - Neonatal respiratory acidosis [Unknown]
  - Right ventricular hypertrophy [Unknown]
  - Cor pulmonale chronic [Unknown]
  - Cardiac murmur [Unknown]
  - Pharyngitis [Unknown]
  - Dyspnoea [Unknown]
  - Palpitations [Unknown]
  - Atrial septal defect [Unknown]
  - Left-to-right cardiac shunt [Unknown]
  - Right-to-left cardiac shunt [Unknown]
  - Right aortic arch [Unknown]
  - Congenital heart valve disorder [Unknown]
  - Pneumonia [Unknown]
  - Left ventricular dysfunction [Unknown]
  - Right atrial enlargement [Unknown]
  - Foetal exposure during pregnancy [Unknown]
  - Rash [Unknown]
  - Tachycardia [Unknown]
  - Nasopharyngitis [Unknown]
  - Laevocardia [Unknown]
  - Congenital pulmonary valve atresia [Unknown]
  - Heart disease congenital [Unknown]
  - Bundle branch block right [Unknown]
  - Pericardial effusion [Unknown]
  - Miller Fisher syndrome [Unknown]
  - Poor feeding infant [Unknown]
  - Upper respiratory tract infection [Unknown]
  - Dehydration [Unknown]

NARRATIVE: CASE EVENT DATE: 20120705
